FAERS Safety Report 5887285-X (Version None)
Quarter: 2008Q3

REPORT INFORMATION
  Report Type: 
  Country: None (occurrence: None)
  Receive Date: 20080915
  Receipt Date: 20080829
  Transmission Date: 20090109
  Serious: Yes (Life-Threatening, Hospitalization)
  Sender: FDA-Public Use
  Company Number: 2008AL010228

PATIENT
  Age: 75 Year
  Sex: Female
  Weight: 90.2658 kg

DRUGS (1)
  1. DIGOXIN [Suspect]
     Indication: CARDIAC DISORDER
     Dosage: 0.125MG DAILY, PO
     Route: 048

REACTIONS (1)
  - CEREBROVASCULAR ACCIDENT [None]
